FAERS Safety Report 5214602-6 (Version None)
Quarter: 2006Q4

REPORT INFORMATION
  Report Type: 
  Country: None (occurrence: None)
  Receive Date: 20061108
  Receipt Date: 20060802
  Transmission Date: 20070319
  Serious: Yes (Other)
  Sender: FDA-Public Use
  Company Number: PHEH2006US09856

PATIENT
  Age: 67 Year
  Sex: Female

DRUGS (3)
  1. ESTRADERM [Suspect]
     Indication: MENOPAUSAL SYMPTOMS
  2. AYGESTIN [Suspect]
     Indication: MENOPAUSAL SYMPTOMS
  3. PREMPRO [Suspect]
     Indication: MENOPAUSAL SYMPTOMS

REACTIONS (4)
  - BREAST CANCER [None]
  - MALIGNANT BREAST LUMP REMOVAL [None]
  - OESTROGEN RECEPTOR ASSAY POSITIVE [None]
  - PROGESTERONE RECEPTOR ASSAY POSITIVE [None]
